FAERS Safety Report 7551397-5 (Version None)
Quarter: 2011Q2

REPORT INFORMATION
  Report Type: 
  Country: None (occurrence: None)
  Receive Date: 20110609
  Receipt Date: 20110524
  Transmission Date: 20111010
  Serious: Yes (Death, Hospitalization)
  Sender: FDA-Public Use
  Company Number: 2011MA006373

PATIENT
  Age: 51 Year
  Sex: Male

DRUGS (2)
  1. EPIRUBICIN HYDROCHLORIDE [Suspect]
     Indication: HEPATIC NEOPLASM MALIGNANT
     Dosage: 50 MG
  2. LAMIVUDINE [Concomitant]

REACTIONS (8)
  - INFECTION REACTIVATION [None]
  - HEPATIC FAILURE [None]
  - HYPOPHAGIA [None]
  - HEPATITIS B [None]
  - ASCITES [None]
  - RADIATION NECROSIS [None]
  - ASTHENIA [None]
  - ENCEPHALOPATHY [None]
